FAERS Safety Report 18753721 (Version 1)
Quarter: 2021Q1

REPORT INFORMATION
  Report Type: Spontaneous
  Country: SA (occurrence: SA)
  Receive Date: 20210118
  Receipt Date: 20210118
  Transmission Date: 20210419
  Serious: Yes (Death, Other)
  Sender: FDA-Public Use
  Company Number: SA-ROCHE-2751299

PATIENT
  Sex: Male

DRUGS (1)
  1. ACTILYSE [Suspect]
     Active Substance: ALTEPLASE
     Indication: ACUTE MYOCARDIAL INFARCTION
     Route: 065

REACTIONS (2)
  - Death [Fatal]
  - Haemorrhage [Unknown]

NARRATIVE: CASE EVENT DATE: 20210114
